FAERS Safety Report 20519804 (Version 1)
Quarter: 2022Q1

REPORT INFORMATION
  Report Type: Spontaneous
  Country: US (occurrence: None)
  Receive Date: 20220225
  Receipt Date: 20220225
  Transmission Date: 20220423
  Serious: Yes (Disabling, Other)
  Sender: FDA-Public Use
  Company Number: None

PATIENT
  Age: 39 Year
  Sex: Male
  Weight: 98.1 kg

DRUGS (6)
  1. BUPRENORPHINE\NALOXONE [Suspect]
     Active Substance: BUPRENORPHINE\NALOXONE
     Indication: Drug withdrawal syndrome
     Dosage: OTHER QUANTITY : 3 SUBLINGUAL FILM;?FREQUENCY : 3 TIMES A DAY;?
     Route: 060
     Dates: start: 20220220, end: 20220224
  2. BUPRENORPHINE\NALOXONE [Suspect]
     Active Substance: BUPRENORPHINE\NALOXONE
     Indication: Prophylaxis
  3. ATENOLOL [Concomitant]
     Active Substance: ATENOLOL
  4. LIPITOR [Concomitant]
     Active Substance: ATORVASTATIN CALCIUM
  5. VASCEPA [Concomitant]
     Active Substance: ICOSAPENT ETHYL
  6. VITAMINS [Concomitant]
     Active Substance: VITAMINS

REACTIONS (7)
  - Product substitution issue [None]
  - Migraine [None]
  - Drug withdrawal syndrome [None]
  - Product after taste [None]
  - Confusional state [None]
  - Blood pressure increased [None]
  - Manufacturing materials contamination [None]

NARRATIVE: CASE EVENT DATE: 20220222
